FAERS Safety Report 19106009 (Version 1)
Quarter: 2021Q2

REPORT INFORMATION
  Report Type: Spontaneous
  Country: ES (occurrence: ES)
  Receive Date: 20210407
  Receipt Date: 20210407
  Transmission Date: 20210717
  Serious: Yes (Other)
  Sender: FDA-Public Use
  Company Number: ES-CASPER PHARMA LLC-2021CAS000153

PATIENT
  Age: 74 Year
  Sex: Female

DRUGS (2)
  1. AZATHIOPRINE. [Suspect]
     Active Substance: AZATHIOPRINE
     Indication: RHEUMATOID ARTHRITIS
     Dosage: 150 MILLIGRAM, QD
     Route: 048
  2. METHOTREXATE. [Suspect]
     Active Substance: METHOTREXATE
     Indication: RHEUMATOID ARTHRITIS
     Dosage: 10 MILLIGRAM PER WEEK
     Route: 048

REACTIONS (3)
  - Hypersensitivity [Recovered/Resolved]
  - Pyrexia [Recovered/Resolved]
  - Cutaneous vasculitis [Recovered/Resolved]
